FAERS Safety Report 10030770 (Version 2)
Quarter: 2014Q1

REPORT INFORMATION
  Report Type: Spontaneous
  Country: US (occurrence: US)
  Receive Date: 20140323
  Receipt Date: 20140323
  Transmission Date: 20141002
  Serious: No
  Sender: FDA-Public Use
  Company Number: US-ALLERGAN-1401323US

PATIENT
  Age: 49 Year
  Sex: Female

DRUGS (4)
  1. LATISSE 0.03% [Suspect]
     Indication: GROWTH OF EYELASHES
     Dosage: UNK
     Route: 061
     Dates: start: 201306
  2. BCP [Concomitant]
     Indication: CONTRACEPTION
     Dosage: UNK
     Dates: start: 201401
  3. BCP [Concomitant]
     Dosage: UNK
     Dates: start: 201303, end: 201309
  4. VITAMINS                           /00067501/ [Concomitant]
     Indication: SUPPLEMENTATION THERAPY

REACTIONS (9)
  - Eyelid skin dryness [Recovered/Resolved]
  - Wrong technique in drug usage process [Unknown]
  - Wrong technique in drug usage process [Unknown]
  - Madarosis [Recovered/Resolved]
  - Madarosis [Recovered/Resolved]
  - Trichorrhexis [Recovered/Resolved]
  - Eyelids pruritus [Recovered/Resolved]
  - Eyelid irritation [Recovered/Resolved]
  - Drug ineffective [Unknown]
